FAERS Safety Report 11677383 (Version 1)
Quarter: 2015Q4

REPORT INFORMATION
  Report Type: Report from Study
  Country: US (occurrence: US)
  Receive Date: 20151028
  Receipt Date: 20151028
  Transmission Date: 20160304
  Serious: Yes (Hospitalization, Other)
  Sender: FDA-Public Use
  Company Number: US-KADMON PHARMACEUTICALS, LLC-KAD201510-003716

PATIENT
  Age: 55 Year
  Sex: Female

DRUGS (17)
  1. LORATADINE. [Concomitant]
     Active Substance: LORATADINE
  2. HYDROCHLOROTHIAZIDE. [Concomitant]
     Active Substance: HYDROCHLOROTHIAZIDE
  3. ASPIRIN. [Concomitant]
     Active Substance: ASPIRIN
  4. MELOXICAM. [Concomitant]
     Active Substance: MELOXICAM
  5. SERTRALINE [Concomitant]
     Active Substance: SERTRALINE HYDROCHLORIDE
  6. RIBAVIRIN 200 MG [Suspect]
     Active Substance: RIBAVIRIN
     Indication: HEPATITIS C
     Route: 048
     Dates: start: 20151001, end: 20151016
  7. LISINOPRIL. [Suspect]
     Active Substance: LISINOPRIL
     Dates: end: 201510
  8. METHOCARBAMOL. [Concomitant]
     Active Substance: METHOCARBAMOL
  9. PENTASA [Concomitant]
     Active Substance: MESALAMINE
  10. VIEKIRA PAK [Suspect]
     Active Substance: DASABUVIR\OMBITASVIR\PARITAPREVIR\RITONAVIR
     Indication: HEPATITIS C
     Dosage: TABLET
     Route: 048
     Dates: start: 20151001, end: 20151016
  11. MONTELUKAST [Concomitant]
     Active Substance: MONTELUKAST SODIUM
  12. DEXILANT [Concomitant]
     Active Substance: DEXLANSOPRAZOLE
  13. VIGRAN (MULTIVITAMIN) [Concomitant]
  14. AMITIZA [Concomitant]
     Active Substance: LUBIPROSTONE
  15. TRAZODONE [Concomitant]
     Active Substance: TRAZODONE HYDROCHLORIDE
  16. AMLODIPINE [Concomitant]
     Active Substance: AMLODIPINE BESYLATE
  17. GABAPENTIN. [Concomitant]
     Active Substance: GABAPENTIN

REACTIONS (6)
  - Lip swelling [Unknown]
  - Oral mucosal blistering [Unknown]
  - Swollen tongue [Unknown]
  - Hypersensitivity [Unknown]
  - Drug dose omission [Recovered/Resolved]
  - Swelling face [Unknown]

NARRATIVE: CASE EVENT DATE: 201510
